FAERS Safety Report 24467243 (Version 1)
Quarter: 2024Q4

REPORT INFORMATION
  Report Type: Report from Study
  Country: US (occurrence: US)
  Receive Date: 20241018
  Receipt Date: 20241018
  Transmission Date: 20250115
  Serious: No
  Sender: ROCHE
  Company Number: US-ROCHE-3569295

PATIENT
  Age: 65 Year
  Sex: Female

DRUGS (1)
  1. XOLAIR [Suspect]
     Active Substance: OMALIZUMAB
     Indication: Idiopathic urticaria
     Dosage: DATE OF SERVICE: 22/SEP/2023, 20/OCT/2023, 15/NOV/2023, 15/DEC/2023, 12/JAN/2024, 09/FEB/2024, 08/MA
     Route: 065
     Dates: start: 20181217, end: 20191217

REACTIONS (2)
  - Off label use [Unknown]
  - No adverse event [Unknown]
